FAERS Safety Report 5201476-2 (Version None)
Quarter: 2007Q1

REPORT INFORMATION
  Report Type: 
  Country: None (occurrence: None)
  Receive Date: 20070108
  Receipt Date: 20061227
  Transmission Date: 20070707
  Serious: Yes (Other)
  Sender: FDA-Public Use
  Company Number: US-PFIZER INC-2006127352

PATIENT
  Sex: Female
  Weight: 113.4 kg

DRUGS (12)
  1. ZYVOX [Suspect]
     Indication: STAPHYLOCOCCAL INFECTION
     Route: 048
     Dates: start: 20060929, end: 20061010
  2. ZYVOX [Interacting]
  3. NARDIL [Interacting]
     Indication: DRUG USE FOR UNKNOWN INDICATION
  4. COUMADIN [Concomitant]
     Indication: DRUG USE FOR UNKNOWN INDICATION
  5. RYTHMOL [Concomitant]
     Indication: DRUG USE FOR UNKNOWN INDICATION
  6. SYNTHROID [Concomitant]
     Indication: DRUG USE FOR UNKNOWN INDICATION
  7. HYDROCHLOROTHIAZIDE [Concomitant]
     Indication: DRUG USE FOR UNKNOWN INDICATION
  8. ALL OTHER THERAPEUTIC PRODUCTS [Concomitant]
     Indication: DRUG USE FOR UNKNOWN INDICATION
  9. NEURONTIN [Concomitant]
     Indication: DRUG USE FOR UNKNOWN INDICATION
  10. MIRAPEX [Concomitant]
     Indication: DRUG USE FOR UNKNOWN INDICATION
  11. PROTONIX [Concomitant]
     Indication: DRUG USE FOR UNKNOWN INDICATION
  12. NYSTATIN [Concomitant]
     Indication: DRUG USE FOR UNKNOWN INDICATION

REACTIONS (7)
  - ANXIETY [None]
  - DIZZINESS [None]
  - DRUG INTERACTION [None]
  - FATIGUE [None]
  - HEARING IMPAIRED [None]
  - HYPOTENSION [None]
  - RASH [None]
